FAERS Safety Report 19686788 (Version 1)
Quarter: 2021Q3

REPORT INFORMATION
  Report Type: Spontaneous
  Country: US (occurrence: US)
  Receive Date: 20210811
  Receipt Date: 20210811
  Transmission Date: 20211014
  Serious: Yes (Other)
  Sender: FDA-Public Use
  Company Number: US-MEDEXUS PHARMA, INC.-2021MED00067

PATIENT
  Age: 66 Year
  Sex: Male
  Weight: 77.1 kg

DRUGS (10)
  1. RASUVO [Suspect]
     Active Substance: METHOTREXATE SODIUM
     Indication: RHEUMATOID ARTHRITIS
     Dosage: 25 MG, 1X/WEEK, ROTATING SITE OF INJECTION BETWEEN THE STOMACH AND THE FRONT SIDE OF UPPER THIGHS
     Dates: end: 20210131
  2. BABY ASPIRIN [Concomitant]
     Active Substance: ASPIRIN
  3. ENBREL [Suspect]
     Active Substance: ETANERCEPT
     Dosage: 50 MG, 1X/WEEK
  4. FOLIC ACID. [Concomitant]
     Active Substance: FOLIC ACID
     Dosage: 1 MG, 1X/DAY
  5. VITAMIN D2 [Concomitant]
     Active Substance: ERGOCALCIFEROL
     Dosage: UNK, 1X/WEEK
  6. MINOCYCLINE [Concomitant]
     Active Substance: MINOCYCLINE HYDROCHLORIDE
  7. LISINOPRIL. [Concomitant]
     Active Substance: LISINOPRIL
     Dosage: UNK UNK, 2X/DAY
  8. RASUVO [Suspect]
     Active Substance: METHOTREXATE SODIUM
     Indication: PSORIASIS
  9. RASUVO [Suspect]
     Active Substance: METHOTREXATE SODIUM
     Indication: RHEUMATOID ARTHRITIS
     Dosage: 20 MG, 1X/WEEK ON THURSDAYS
     Dates: start: 20210311
  10. RASUVO [Suspect]
     Active Substance: METHOTREXATE SODIUM
     Indication: PSORIASIS

REACTIONS (9)
  - Paraesthesia [Not Recovered/Not Resolved]
  - Skin exfoliation [Recovering/Resolving]
  - Hypertension [Recovering/Resolving]
  - Vascular compression [Recovering/Resolving]
  - Burning sensation [Not Recovered/Not Resolved]
  - Immunosuppression [Recovering/Resolving]
  - Neck pain [Not Recovered/Not Resolved]
  - Dizziness postural [Recovering/Resolving]
  - Hepatic enzyme increased [Recovered/Resolved]

NARRATIVE: CASE EVENT DATE: 2021
